FAERS Safety Report 8280757-2 (Version None)
Quarter: 2012Q2

REPORT INFORMATION
  Report Type: 
  Country: None (occurrence: None)
  Receive Date: 20120412
  Receipt Date: 20120404
  Transmission Date: 20120825
  Serious: Yes (Life-Threatening, Other)
  Sender: FDA-Public Use
  Company Number: FR-ABBOTT-12P-056-0921528-00

PATIENT
  Sex: Male

DRUGS (4)
  1. SULFASALAZINE [Suspect]
     Indication: RHEUMATOID ARTHRITIS
     Route: 048
     Dates: start: 20040101, end: 20111213
  2. UNKNOWN CORTICOID [Concomitant]
     Indication: RHEUMATOID ARTHRITIS
  3. FOSAMAX [Concomitant]
     Indication: RHEUMATOID ARTHRITIS
  4. HUMIRA [Suspect]
     Indication: RHEUMATOID ARTHRITIS
     Route: 058
     Dates: start: 20041009, end: 20111212

REACTIONS (6)
  - OSTEOLYSIS [None]
  - CRANIAL NERVE DISORDER [None]
  - LUNG NEOPLASM MALIGNANT [None]
  - INFLAMMATORY PAIN [None]
  - NECK PAIN [None]
  - HEADACHE [None]
